FAERS Safety Report 12999967 (Version 1)
Quarter: 2016Q4

REPORT INFORMATION
  Report Type: Report from Study
  Country: CN (occurrence: CN)
  Receive Date: 20161205
  Receipt Date: 20161205
  Transmission Date: 20170207
  Serious: Yes (Hospitalization, Other)
  Sender: FDA-Public Use
  Company Number: CN-GILEAD-2016-0247145

PATIENT
  Age: 31 Year
  Sex: Male

DRUGS (2)
  1. LAMIVUDINE. [Concomitant]
     Active Substance: LAMIVUDINE
     Indication: HEPATITIS B
     Dosage: 10 MG, QD
     Route: 065
  2. ADEFOVIR DIPIVOXIL. [Suspect]
     Active Substance: ADEFOVIR DIPIVOXIL
     Indication: CHRONIC HEPATITIS B
     Route: 065

REACTIONS (6)
  - Pain [Unknown]
  - Oncogenic osteomalacia [Recovered/Resolved]
  - Muscular weakness [Unknown]
  - Osteoporosis [Unknown]
  - Myalgia [Unknown]
  - Asthenia [Unknown]
